FAERS Safety Report 5827161-1 (Version None)
Quarter: 2008Q3

REPORT INFORMATION
  Report Type: 
  Country: None (occurrence: None)
  Receive Date: 20080730
  Receipt Date: 20080721
  Transmission Date: 20090109
  Serious: Yes (Other)
  Sender: FDA-Public Use
  Company Number: US-JNJFOC-20080700543

PATIENT
  Sex: Male
  Weight: 82.1 kg

DRUGS (7)
  1. REMICADE [Suspect]
     Indication: PSORIATIC ARTHROPATHY
     Route: 042
  2. REMICADE [Suspect]
     Indication: PSORIASIS
     Route: 042
  3. METHOTREXATE [Concomitant]
  4. SULFASALAZINE [Concomitant]
  5. M.V.I. [Concomitant]
  6. FOLIC ACID [Concomitant]
  7. FISH OIL [Concomitant]

REACTIONS (4)
  - ADVERSE DRUG REACTION [None]
  - HEPATIC ENZYME INCREASED [None]
  - HEPATITIS [None]
  - LIVER INJURY [None]
